FAERS Safety Report 23673799 (Version 2)
Quarter: 2024Q2

REPORT INFORMATION
  Report Type: Spontaneous
  Country: PT (occurrence: PT)
  Receive Date: 20240326
  Receipt Date: 20240401
  Transmission Date: 20240715
  Serious: Yes (Death, Other)
  Sender: FDA-Public Use
  Company Number: PT-ROCHE-3452556

PATIENT
  Age: 52 Year
  Sex: Female
  Weight: 58 kg

DRUGS (50)
  1. TAXOTERE [Suspect]
     Active Substance: DOCETAXEL
     Indication: HER2 positive breast cancer
     Dosage: UNK UNK, Q3W
     Route: 042
     Dates: start: 20210104, end: 20210629
  2. CAPECITABINE [Suspect]
     Active Substance: CAPECITABINE
     Indication: Product used for unknown indication
     Dosage: 1800 MG
     Route: 048
     Dates: start: 20180529, end: 20180820
  3. CAPECITABINE [Suspect]
     Active Substance: CAPECITABINE
     Dosage: 1500 MG
     Route: 048
     Dates: start: 20180821, end: 20181114
  4. CAPECITABINE [Suspect]
     Active Substance: CAPECITABINE
     Dosage: 1300 MG
     Route: 048
     Dates: start: 20181115, end: 20181206
  5. METHOTREXATE [Suspect]
     Active Substance: METHOTREXATE
     Indication: HER2 positive breast cancer
     Dosage: UNK UNK, Q3W
     Route: 042
     Dates: start: 20201013, end: 20210103
  6. TAXOL [Suspect]
     Active Substance: PACLITAXEL
     Indication: HER2 positive breast cancer
     Dosage: UNK, QW
     Route: 042
     Dates: start: 20190813, end: 20200211
  7. HERCEPTIN [Suspect]
     Active Substance: TRASTUZUMAB
     Indication: HER2 positive breast cancer
     Dosage: UNK UNK, Q3W
     Route: 042
     Dates: start: 20221214, end: 20221230
  8. HERCEPTIN [Suspect]
     Active Substance: TRASTUZUMAB
     Indication: HER2 positive breast cancer
     Dosage: MOST RECENT DOSE PRIOR TO THE EVENT: 13/OCT/2020, 14/DEC/2022
     Route: 058
     Dates: start: 20180529, end: 20190729
  9. HERCEPTIN [Suspect]
     Active Substance: TRASTUZUMAB
     Dosage: UNK UNK, Q3W
     Route: 058
     Dates: start: 20180529
  10. HERCEPTIN [Suspect]
     Active Substance: TRASTUZUMAB
     Dosage: UNK UNK, Q3W
     Route: 058
     Dates: start: 20180529, end: 20190117
  11. CARBOPLATIN [Suspect]
     Active Substance: CARBOPLATIN
     Indication: HER2 positive breast cancer
     Dosage: MOST RECENT DOSE: 30/DEC/2022
     Route: 042
     Dates: start: 20221214, end: 20221230
  12. FAM-TRASTUZUMAB DERUXTECAN-NXKI [Suspect]
     Active Substance: FAM-TRASTUZUMAB DERUXTECAN-NXKI
     Indication: HER2 positive breast cancer
     Dosage: UNK
     Dates: start: 20190308, end: 20190729
  13. FAM-TRASTUZUMAB DERUXTECAN-NXKI [Suspect]
     Active Substance: FAM-TRASTUZUMAB DERUXTECAN-NXKI
     Dosage: 190.8 UG, Q3W
     Dates: start: 20170614, end: 20180318
  14. FAM-TRASTUZUMAB DERUXTECAN-NXKI [Suspect]
     Active Substance: FAM-TRASTUZUMAB DERUXTECAN-NXKI
     Dosage: UNK, Q3W
     Route: 042
     Dates: start: 20210714, end: 20221124
  15. NAVELBINE [Suspect]
     Active Substance: VINORELBINE TARTRATE
     Indication: HER2 positive breast cancer
     Dosage: UNK UNK, QW
     Route: 042
     Dates: start: 20200310, end: 20201001
  16. ADRUCIL [Suspect]
     Active Substance: FLUOROURACIL
     Indication: HER2 positive breast cancer
     Dosage: UNK UNK, Q3W
     Route: 042
     Dates: start: 20201013, end: 20210103
  17. EFUDEX [Suspect]
     Active Substance: FLUOROURACIL
     Indication: HER2 positive breast cancer
     Dosage: UNK UNK, Q3W
     Route: 042
     Dates: start: 20201013, end: 20210103
  18. FLUOROPLEX [Suspect]
     Active Substance: FLUOROURACIL
     Indication: HER2 positive breast cancer
     Dosage: UNK UNK, Q3W
     Route: 042
     Dates: start: 20201013, end: 20210103
  19. TYKERB [Suspect]
     Active Substance: LAPATINIB DITOSYLATE
     Indication: HER2 positive breast cancer
     Dosage: 1000 MG, QD
     Route: 048
     Dates: start: 20190207, end: 20190723
  20. GEMZAR [Suspect]
     Active Substance: GEMCITABINE HYDROCHLORIDE
     Indication: HER2 positive breast cancer
     Dosage: UNK, Q3W
     Dates: start: 20221214, end: 20221230
  21. CYTOXAN [Suspect]
     Active Substance: CYCLOPHOSPHAMIDE
     Indication: HER2 positive breast cancer
     Dosage: UNK, Q3W
     Route: 042
     Dates: start: 20201013, end: 20210103
  22. KADCYLA [Suspect]
     Active Substance: ADO-TRASTUZUMAB EMTANSINE
     Indication: HER2 positive breast cancer
     Dosage: MOST RECENT DOSE: 08/MAR/2018, 17/APR/2018
     Route: 042
     Dates: start: 20170614, end: 20180308
  23. KADCYLA [Suspect]
     Active Substance: ADO-TRASTUZUMAB EMTANSINE
     Dosage: 190.8 MG, Q3W
     Route: 042
     Dates: start: 20180417, end: 20180508
  24. PERJETA [Suspect]
     Active Substance: PERTUZUMAB
     Indication: HER2 positive breast cancer
     Dosage: UNK, Q3W
     Route: 042
     Dates: start: 20190903
  25. PERJETA [Suspect]
     Active Substance: PERTUZUMAB
     Dosage: UNK, Q3W
     Route: 042
     Dates: start: 20190903, end: 20200218
  26. LEVOCETIRIZINE [Concomitant]
     Active Substance: LEVOCETIRIZINE
     Dosage: UNK
  27. IPRATROPIUM BROMIDE [Concomitant]
     Active Substance: IPRATROPIUM BROMIDE\IPRATROPIUM BROMIDE ANHYDROUS
     Dosage: ONGOING = NOT CHECKED, 1.00 AMPULE
     Dates: end: 20221230
  28. CETIRIZINE [Concomitant]
     Active Substance: CETIRIZINE HYDROCHLORIDE
     Dosage: ONGOING = NOT CHECKED
     Dates: end: 20221230
  29. IVABRADINE [Concomitant]
     Active Substance: IVABRADINE
     Indication: Ejection fraction decreased
     Dosage: UNK
     Dates: start: 20180308, end: 20221230
  30. ACETAMINOPHEN [Concomitant]
     Active Substance: ACETAMINOPHEN
     Dosage: ONGOING = NOT CHECKED
     Dates: end: 20221230
  31. LOPERAMIDE [Concomitant]
     Active Substance: LOPERAMIDE
     Dosage: ONGOING = NOT CHECKED
     Dates: end: 20221230
  32. FERRIC CARBOXYMALTOSE [Concomitant]
     Active Substance: FERRIC CARBOXYMALTOSE
  33. PREGABALIN [Concomitant]
     Active Substance: PREGABALIN
     Dosage: ONGOING = NOT CHECKED
     Dates: end: 20221230
  34. CALCIUM CARBONATE [Concomitant]
     Active Substance: CALCIUM CARBONATE
     Dosage: ONGOING = NOT CHECKED
     Dates: end: 20221230
  35. OXYCODONE [Concomitant]
     Active Substance: OXYCODONE\OXYCODONE HYDROCHLORIDE
     Dosage: ONGOING = NOT CHECKED
     Dates: end: 20221230
  36. AZITHROMYCIN [Concomitant]
     Active Substance: AZITHROMYCIN
  37. CALCIUM\CHOLECALCIFEROL [Concomitant]
     Active Substance: CALCIUM\CHOLECALCIFEROL
     Dosage: ONGOING = NOT CHECKED
     Dates: start: 20170509, end: 20221230
  38. RAMIPRIL [Concomitant]
     Active Substance: RAMIPRIL
     Indication: Ejection fraction decreased
     Dosage: ONGOING = NOT CHECKED
     Dates: start: 20180308, end: 20221230
  39. CHOLECALCIFEROL [Concomitant]
     Active Substance: CHOLECALCIFEROL
     Dosage: ONGOING = NOT CHECKED
     Dates: end: 20221230
  40. BISOPROLOL [Concomitant]
     Active Substance: BISOPROLOL\BISOPROLOL FUMARATE
     Dosage: ONGOING = NOT CHECKED
     Dates: start: 20171129, end: 20221230
  41. ZOLEDRONIC ACID [Concomitant]
     Active Substance: ZOLEDRONIC ACID
     Dosage: ONGOING = NOT CHECKED
     Dates: start: 20170509, end: 20221230
  42. NALOXONE HYDROCHLORIDE\OXYCODONE HYDROCHLORIDE [Concomitant]
     Active Substance: NALOXONE HYDROCHLORIDE\OXYCODONE HYDROCHLORIDE
     Dosage: ONGOING = NOT CHECKED
     Dates: start: 20170529, end: 20221230
  43. PYRIDOXINE [Concomitant]
     Active Substance: PYRIDOXINE
     Dosage: ONGOING = NOT CHECKED
     Dates: end: 20221230
  44. BUDESONIDE [Concomitant]
     Active Substance: BUDESONIDE
     Dosage: ONGOING = NOT CHECKED
     Dates: end: 20221230
  45. BACIDERMA [Concomitant]
     Dosage: ONGOING = NOT CHECKED
     Dates: end: 20221230
  46. NALOXONE [Concomitant]
     Active Substance: NALOXONE
     Dosage: ONGOING = NOT CHECKED
     Dates: end: 20221230
  47. PREDNISONE [Concomitant]
     Active Substance: PREDNISONE
  48. FILGRASTIM [Concomitant]
     Active Substance: FILGRASTIM
     Dosage: ONGOING = NOT CHECKED
     Dates: end: 20221230
  49. METOCLOPRAMIDE [Concomitant]
     Active Substance: METOCLOPRAMIDE
     Dosage: ONGOING = NOT CHECKED
     Dates: end: 20221230
  50. ACETYLCYSTEINE [Concomitant]
     Active Substance: ACETYLCYSTEINE
     Dosage: ONGOING = NOT CHECKED
     Dates: end: 20221230

REACTIONS (2)
  - Pancytopenia [Fatal]
  - Pneumonia [Fatal]

NARRATIVE: CASE EVENT DATE: 20221227
